FAERS Safety Report 10167255 (Version 1)
Quarter: 2014Q2

REPORT INFORMATION
  Report Type: Spontaneous
  Country: US (occurrence: None)
  Receive Date: 20140509
  Receipt Date: 20140509
  Transmission Date: 20141212
  Serious: Yes (Other)
  Sender: FDA-Public Use
  Company Number: None

PATIENT
  Age: 82 Year
  Sex: Female

DRUGS (1)
  1. TRIAMCINOLONE [Suspect]

REACTIONS (3)
  - Back pain [None]
  - Pain in extremity [None]
  - Balance disorder [None]
